FAERS Safety Report 9617004 (Version 4)
Quarter: 2013Q4

REPORT INFORMATION
  Report Type: Spontaneous
  Country: US (occurrence: US)
  Receive Date: 20131011
  Receipt Date: 20131025
  Transmission Date: 20140711
  Serious: Yes (Other)
  Sender: FDA-Public Use
  Company Number: CHPA2013US015410

PATIENT
  Age: 72 Year
  Sex: Female

DRUGS (5)
  1. VOLTAREN GEL [Suspect]
     Indication: ARTHRALGIA
     Dosage: 4 G, 6 TIMES A DAY
     Route: 061
     Dates: start: 20130828
  2. VOLTAREN GEL [Suspect]
     Indication: OFF LABEL USE
     Dosage: UNK, UNK
     Route: 061
     Dates: start: 201308
  3. VOLTAREN GEL [Suspect]
     Dosage: 4 G, TID
     Route: 061
     Dates: start: 201306, end: 2013
  4. ALLOPURINOL [Concomitant]
     Indication: HYPERURICAEMIA
     Dosage: UNK, UNK
     Route: 065
  5. LORTAB [Concomitant]
     Indication: ARTHRALGIA
     Dosage: UNK, UNK
     Route: 065

REACTIONS (6)
  - Post procedural complication [Recovered/Resolved]
  - Arthralgia [Not Recovered/Not Resolved]
  - Therapeutic response unexpected [Unknown]
  - Wrong technique in drug usage process [Unknown]
  - Drug administered at inappropriate site [Unknown]
  - Overdose [Unknown]
